FAERS Safety Report 17815285 (Version 1)
Quarter: 2020Q2

REPORT INFORMATION
  Report Type: Spontaneous
  Country: US (occurrence: US)
  Receive Date: 20200521
  Receipt Date: 20200521
  Transmission Date: 20200714
  Serious: Yes (Other)
  Sender: FDA-Public Use
  Company Number: None

PATIENT
  Age: 58 Year
  Sex: Female
  Weight: 78.02 kg

DRUGS (1)
  1. LAMOTRIGINE (GENERIC LAMICTAL) [Suspect]
     Active Substance: LAMOTRIGINE
     Indication: BIPOLAR II DISORDER
     Route: 048
     Dates: start: 20140603

REACTIONS (2)
  - Therapeutic product effect variable [None]
  - Product substitution issue [None]
